FAERS Safety Report 20684408 (Version 1)
Quarter: 2022Q2

REPORT INFORMATION
  Report Type: Spontaneous
  Country: US (occurrence: US)
  Receive Date: 20220407
  Receipt Date: 20220407
  Transmission Date: 20220720
  Serious: No
  Sender: FDA-Public Use
  Company Number: US-MYLANLABS-2022M1010161

PATIENT
  Age: 53 Year
  Sex: Female
  Weight: 90.72 kg

DRUGS (2)
  1. FENTANYL TRANSDERMAL SYSTEM [Suspect]
     Active Substance: FENTANYL
     Indication: Pain management
     Dosage: UNK
     Route: 062
  2. FENTANYL TRANSDERMAL SYSTEM [Suspect]
     Active Substance: FENTANYL
     Indication: Scoliosis
     Dosage: 21-MAR-2022, 75 MICROGRAM, QH

REACTIONS (4)
  - Product adhesion issue [Unknown]
  - Product packaging issue [Unknown]
  - Product tampering [Unknown]
  - Drug ineffective [Unknown]

NARRATIVE: CASE EVENT DATE: 20220110
